FAERS Safety Report 14946145 (Version 1)
Quarter: 2018Q2

REPORT INFORMATION
  Report Type: Spontaneous
  Country: US (occurrence: US)
  Receive Date: 20180529
  Receipt Date: 20180529
  Transmission Date: 20180711
  Serious: No
  Sender: FDA-Public Use
  Company Number: US-BEH-2018090901

PATIENT
  Sex: Female
  Weight: 68.93 kg

DRUGS (19)
  1. SINGULAIR [Concomitant]
     Active Substance: MONTELUKAST SODIUM
  2. DILTIAZEM. [Concomitant]
     Active Substance: DILTIAZEM
  3. SYMBICORT [Concomitant]
     Active Substance: BUDESONIDE\FORMOTEROL FUMARATE DIHYDRATE
  4. ACETAMINOPHEN. [Concomitant]
     Active Substance: ACETAMINOPHEN
  5. MEPOLIZUMAB [Concomitant]
     Active Substance: MEPOLIZUMAB
  6. FLUTICASONE. [Concomitant]
     Active Substance: FLUTICASONE
  7. PANTOPRAZOLE [Concomitant]
     Active Substance: PANTOPRAZOLE
  8. XOLAIR [Concomitant]
     Active Substance: OMALIZUMAB
  9. MIRTAZAPINE. [Concomitant]
     Active Substance: MIRTAZAPINE
  10. FUROSEMIDE. [Concomitant]
     Active Substance: FUROSEMIDE
  11. POTASSIUM [Concomitant]
     Active Substance: POTASSIUM
  12. DICLOFENAC [Concomitant]
     Active Substance: DICLOFENAC
  13. BIOTIN [Concomitant]
     Active Substance: BIOTIN
  14. PRIVIGEN [Suspect]
     Active Substance: HUMAN IMMUNOGLOBULIN G
     Indication: ASTHMA
     Dosage: 100 MG, QMT (EVERY 28 DAYS)
     Route: 058
     Dates: start: 20170821
  15. STERILE WATER [Concomitant]
     Active Substance: WATER
  16. VENTOLIN [Concomitant]
     Active Substance: ALBUTEROL SULFATE
  17. PULMICORT TURBUHALER [Concomitant]
     Active Substance: BUDESONIDE
  18. MULTIVITAMINS [Concomitant]
     Active Substance: VITAMINS
  19. ACIDOPHILUS [Concomitant]
     Active Substance: LACTOBACILLUS ACIDOPHILUS

REACTIONS (1)
  - Blood creatine increased [Unknown]
